FAERS Safety Report 19901829 (Version 1)
Quarter: 2021Q3

REPORT INFORMATION
  Report Type: Spontaneous
  Country: CN (occurrence: CN)
  Receive Date: 20210929
  Receipt Date: 20210929
  Transmission Date: 20211014
  Serious: Yes (Hospitalization)
  Sender: FDA-Public Use
  Company Number: CN-BAXTER-2021BAX026434

PATIENT
  Age: 61 Year
  Sex: Female
  Weight: 52 kg

DRUGS (16)
  1. ENDOXAN [Suspect]
     Active Substance: CYCLOPHOSPHAMIDE
     Dosage: CYCLOPHOSPHAMIDE 1.1 G + 0.9% NS100 ML, 3RD R?DA?EPOCH REGIMEN
     Route: 041
     Dates: start: 20200220, end: 20200220
  2. ETOPOSIDE. [Suspect]
     Active Substance: ETOPOSIDE
     Indication: NON-HODGKIN^S LYMPHOMA
     Dosage: 1ST AND 2ND CHEMOTHERAPY
     Route: 065
  3. DOXORUBICIN HYDROCHLORIDE LIPOSOME [Suspect]
     Active Substance: DOXORUBICIN HYDROCHLORIDE
     Indication: NON-HODGKIN^S LYMPHOMA
     Dosage: 1ST AND 2ND CHEMOTHERAPY
     Route: 065
  4. DOXORUBICIN HYDROCHLORIDE LIPOSOME [Suspect]
     Active Substance: DOXORUBICIN HYDROCHLORIDE
     Dosage: DOXORUBICIN 60 MG + GLUCOSE 250ML
     Route: 041
     Dates: start: 20200216, end: 20200216
  5. RITUXIMAB. [Suspect]
     Active Substance: RITUXIMAB
     Indication: NON-HODGKIN^S LYMPHOMA
     Dosage: 1ST AND 2ND CHEMOTHERAPY
     Route: 065
  6. 0.9% SODIUM CHLORIDE INJECTION [Suspect]
     Active Substance: SODIUM CHLORIDE
     Dosage: ROUTE: INTRA?PUMP INJECTION; 0.9% NS 300ML + ETOPOSIDE 0.087G
     Route: 050
     Dates: start: 20200216, end: 20200220
  7. PREDNISONE ACETATE [Suspect]
     Active Substance: PREDNISONE ACETATE
     Dosage: TABLETS
     Route: 048
     Dates: start: 20200216, end: 20200221
  8. 0.9% SODIUM CHLORIDE INJECTION [Suspect]
     Active Substance: SODIUM CHLORIDE
     Indication: MEDICATION DILUTION
     Dosage: 0.9% NS100ML + CYCLOPHOSPHAMIDE 1.1G
     Route: 041
     Dates: start: 20200220, end: 20200220
  9. VINCRISTINE SULFATE. [Suspect]
     Active Substance: VINCRISTINE SULFATE
     Dosage: ROUTE: INTRA?PUMP INJECTION;
     Route: 050
     Dates: start: 20200216, end: 20200220
  10. PREDNISONE ACETATE [Suspect]
     Active Substance: PREDNISONE ACETATE
     Indication: NON-HODGKIN^S LYMPHOMA
     Dosage: 1ST AND 2ND CHEMOTHERAPY
     Route: 065
  11. ENDOXAN [Suspect]
     Active Substance: CYCLOPHOSPHAMIDE
     Indication: NON-HODGKIN^S LYMPHOMA
     Dosage: 1ST AND 2ND R?DA?EPOCH REGIMEN
     Route: 065
  12. VINCRISTINE SULFATE. [Suspect]
     Active Substance: VINCRISTINE SULFATE
     Indication: NON-HODGKIN^S LYMPHOMA
     Dosage: 1ST AND 2ND CHEMOTHERAPY
     Route: 065
  13. 5% GLUCOSE  INJECTION [Suspect]
     Active Substance: DEXTROSE
     Indication: MEDICATION DILUTION
     Dosage: 5% GS250ML + DOXORUBICIN LIPOSOME 60MG
     Route: 041
     Dates: start: 20200216, end: 20200216
  14. 0.9% SODIUM CHLORIDE INJECTION [Suspect]
     Active Substance: SODIUM CHLORIDE
     Dosage: 0.9% NS 200 ML + RITUXIMAB 600 MG
     Route: 041
     Dates: start: 20200215, end: 20200215
  15. RITUXIMAB. [Suspect]
     Active Substance: RITUXIMAB
     Dosage: RITUXIMAB 600 MG + SODIUM CHLORIDE 200 ML
     Route: 041
     Dates: start: 20200215, end: 20200215
  16. ETOPOSIDE. [Suspect]
     Active Substance: ETOPOSIDE
     Dosage: ROUTE: INTRA?PUMP INJECTION; 0.9% NS300ML + ETOPOSIDE 0.087 G
     Route: 050
     Dates: start: 20200216, end: 20200220

REACTIONS (2)
  - Myelosuppression [Recovering/Resolving]
  - Hepatic function abnormal [Recovering/Resolving]

NARRATIVE: CASE EVENT DATE: 20200228
